FAERS Safety Report 12348391 (Version 3)
Quarter: 2019Q4

REPORT INFORMATION
  Report Type: Spontaneous
  Country: ES (occurrence: ES)
  Receive Date: 20160509
  Receipt Date: 20191223
  Transmission Date: 20200122
  Serious: Yes (Other)
  Sender: FDA-Public Use
  Company Number: ES-AMGEN-ESPCT2016058142

PATIENT

DRUGS (1)
  1. ETANERCEPT [Suspect]
     Active Substance: ETANERCEPT
     Indication: SLE ARTHRITIS
     Dosage: 50 MILLIGRAM, WEEKLY
     Route: 058

REACTIONS (1)
  - Bacterial parotitis [Recovered/Resolved]
